FAERS Safety Report 4355614-4 (Version None)
Quarter: 2004Q2

REPORT INFORMATION
  Report Type: 
  Country: None (occurrence: None)
  Receive Date: 20040505
  Receipt Date: 20040419
  Transmission Date: 20050107
  Serious: Yes (Hospitalization)
  Sender: FDA-Public Use
  Company Number: S04-FRA-01526-01

PATIENT
  Age: 80 Year
  Sex: Female

DRUGS (3)
  1. EBIXA (MEMANTINE) [Suspect]
     Indication: DEMENTIA ALZHEIMER'S TYPE
     Dosage: 10 MG QD PO
     Route: 048
     Dates: start: 20040223
  2. CYAMEMAZINE [Suspect]
     Indication: ABNORMAL BEHAVIOUR
     Dates: start: 20040223, end: 20040323
  3. NICARDIPINE HYDROCHLORIDE [Concomitant]

REACTIONS (3)
  - AGRANULOCYTOSIS [None]
  - PLATELET COUNT INCREASED [None]
  - WHITE BLOOD CELL COUNT DECREASED [None]
